FAERS Safety Report 15634418 (Version 2)
Quarter: 2021Q4

REPORT INFORMATION
  Report Type: Spontaneous
  Country: US (occurrence: US)
  Receive Date: 20181119
  Receipt Date: 20211108
  Transmission Date: 20220303
  Serious: Yes (Other)
  Sender: FDA-Public Use
  Company Number: US-PFIZER INC-2018462859

PATIENT
  Age: 49 Year
  Sex: Male
  Weight: 99.79 kg

DRUGS (2)
  1. XELJANZ XR [Suspect]
     Active Substance: TOFACITINIB CITRATE
     Dosage: 11 MG
  2. XELJANZ XR [Suspect]
     Active Substance: TOFACITINIB CITRATE
     Dosage: 11 MG, UNK
     Dates: start: 201810

REACTIONS (8)
  - Pulmonary oedema [Unknown]
  - Abnormal faeces [Unknown]
  - Acid base balance abnormal [Unknown]
  - Drug ineffective [Unknown]
  - Faeces discoloured [Unknown]
  - Faeces soft [Unknown]
  - Flatulence [Not Recovered/Not Resolved]
  - Irritable bowel syndrome [Recovering/Resolving]

NARRATIVE: CASE EVENT DATE: 20181001
